FAERS Safety Report 20375198 (Version 1)
Quarter: 2022Q1

REPORT INFORMATION
  Report Type: Spontaneous
  Country: US (occurrence: None)
  Receive Date: 20220124
  Receipt Date: 20220124
  Transmission Date: 20220423
  Serious: Yes (Disabling)
  Sender: FDA-Public Use
  Company Number: None

PATIENT
  Age: 60 Year
  Sex: Female
  Weight: 108.9 kg

DRUGS (14)
  1. OZEMPIC [Suspect]
     Active Substance: SEMAGLUTIDE
     Indication: Type 2 diabetes mellitus
     Dosage: OTHER FREQUENCY : ONCE A WEEK;?OTHER ROUTE : INJECTED IN RIGHT THIGH;?
     Route: 050
     Dates: start: 20220122
  2. METFORMIN [Concomitant]
     Active Substance: METFORMIN HYDROCHLORIDE
  3. ATORVASTATIN [Concomitant]
     Active Substance: ATORVASTATIN
  4. ZOLOFT [Concomitant]
     Active Substance: SERTRALINE HYDROCHLORIDE
  5. LASIX [Interacting]
     Active Substance: FUROSEMIDE
  6. AZOR [Concomitant]
     Active Substance: AMLODIPINE BESYLATE\OLMESARTAN MEDOXOMIL
  7. XANAX [Concomitant]
     Active Substance: ALPRAZOLAM
  8. HYDROCODONE [Concomitant]
     Active Substance: HYDROCODONE
  9. NASONEX [Suspect]
     Active Substance: MOMETASONE FUROATE
  10. ALBUTEROL [Concomitant]
     Active Substance: ALBUTEROL
  11. TYLENOL [Concomitant]
     Active Substance: ACETAMINOPHEN
  12. ASPIRIN [Concomitant]
     Active Substance: ASPIRIN
  13. VITAMINS [Concomitant]
     Active Substance: VITAMINS
  14. VITAMIN D [Concomitant]
     Active Substance: VITAMIN D NOS

REACTIONS (14)
  - Nausea [None]
  - Headache [None]
  - Palpitations [None]
  - Fatigue [None]
  - Dysgeusia [None]
  - Vomiting [None]
  - Muscle spasms [None]
  - Chills [None]
  - Flatulence [None]
  - Abdominal distension [None]
  - Abdominal discomfort [None]
  - Dry mouth [None]
  - Furuncle [None]
  - Oral pustule [None]

NARRATIVE: CASE EVENT DATE: 20220122
